FAERS Safety Report 21274730 (Version 1)
Quarter: 2022Q3

REPORT INFORMATION
  Report Type: Spontaneous
  Country: US (occurrence: None)
  Receive Date: 20220830
  Receipt Date: 20220830
  Transmission Date: 20221027
  Serious: Yes (Other)
  Sender: FDA-Public Use
  Company Number: None

PATIENT
  Age: 31 Year
  Sex: Female

DRUGS (1)
  1. SKYRIZI [Suspect]
     Active Substance: RISANKIZUMAB-RZAA
     Dosage: OTHER FREQUENCY : Q 12 WEEKS;?
     Dates: start: 20220505

REACTIONS (2)
  - Therapeutic response shortened [None]
  - Psoriasis [None]

NARRATIVE: CASE EVENT DATE: 20220601
